FAERS Safety Report 20568102 (Version 2)
Quarter: 2022Q1

REPORT INFORMATION
  Report Type: Spontaneous
  Country: ES (occurrence: ES)
  Receive Date: 20220308
  Receipt Date: 20220311
  Transmission Date: 20220423
  Serious: Yes (Other)
  Sender: FDA-Public Use
  Company Number: ES-MLMSERVICE-20220224-3396894-1

PATIENT
  Age: 41 Year
  Sex: Female

DRUGS (1)
  1. TACROLIMUS [Suspect]
     Active Substance: TACROLIMUS
     Indication: Product used for unknown indication
     Dosage: UNK
     Route: 065

REACTIONS (6)
  - Retinal deposits [Unknown]
  - Retinal ischaemia [Unknown]
  - Detachment of retinal pigment epithelium [Unknown]
  - Maculopathy [Unknown]
  - Tremor [Unknown]
  - Headache [Unknown]
